FAERS Safety Report 8051622-0 (Version None)
Quarter: 2012Q1

REPORT INFORMATION
  Report Type: 
  Country: None (occurrence: None)
  Receive Date: 20120118
  Receipt Date: 20120110
  Transmission Date: 20120608
  Serious: Yes (Hospitalization)
  Sender: FDA-Public Use
  Company Number: US-BIOGENIDEC-2012BI001174

PATIENT
  Age: 61 Year
  Sex: Male

DRUGS (2)
  1. FLOMAX [Concomitant]
  2. AVONEX [Suspect]
     Indication: MULTIPLE SCLEROSIS
     Route: 030
     Dates: start: 20100811

REACTIONS (2)
  - STAPHYLOCOCCAL SEPSIS [None]
  - FALL [None]
